FAERS Safety Report 15258082 (Version 1)
Quarter: 2018Q3

REPORT INFORMATION
  Report Type: Spontaneous
  Country: US (occurrence: US)
  Receive Date: 20180809
  Receipt Date: 20180809
  Transmission Date: 20181010
  Serious: No
  Sender: FDA-Public Use
  Company Number: US-009507513-1012USA01995

PATIENT
  Age: 22 Year
  Sex: Female

DRUGS (7)
  1. ISENTRESS [Suspect]
     Active Substance: RALTEGRAVIR POTASSIUM
     Indication: ANTIVIRAL TREATMENT
     Route: 048
  2. ETRAVIRINE [Suspect]
     Active Substance: ETRAVIRINE
  3. DARUNAVIR [Suspect]
     Active Substance: DARUNAVIR
  4. NELFINAVIR [Suspect]
     Active Substance: NELFINAVIR
  5. RITONAVIR. [Suspect]
     Active Substance: RITONAVIR
  6. ZIDOVUDINE. [Suspect]
     Active Substance: ZIDOVUDINE
  7. LAMIVUDINE. [Suspect]
     Active Substance: LAMIVUDINE
     Dosage: UNK

REACTIONS (2)
  - Maternal exposure during pregnancy [Recovered/Resolved]
  - Premature baby [Unknown]

NARRATIVE: CASE EVENT DATE: 20090204
